FAERS Safety Report 20548159 (Version 1)
Quarter: 2022Q1

REPORT INFORMATION
  Report Type: Report from Study
  Country: US (occurrence: US)
  Receive Date: 20220303
  Receipt Date: 20220303
  Transmission Date: 20220423
  Serious: Yes (Other)
  Sender: FDA-Public Use
  Company Number: US-GILEAD-2022-0570601

PATIENT
  Age: 61 Year
  Sex: Male

DRUGS (32)
  1. SOFOSBUVIR\VELPATASVIR [Suspect]
     Active Substance: SOFOSBUVIR\VELPATASVIR
     Indication: Product used for unknown indication
     Dosage: 500 MG, QD
     Route: 065
     Dates: start: 20180420, end: 20180713
  2. ACETAMINOPHEN [Concomitant]
     Active Substance: ACETAMINOPHEN
  3. AMLODIPINE [Concomitant]
     Active Substance: AMLODIPINE BESYLATE
  4. AZITHROMYCIN [Concomitant]
     Active Substance: AZITHROMYCIN
  5. BISACODYL [Concomitant]
     Active Substance: BISACODYL
  6. CELLCEPT [Concomitant]
     Active Substance: MYCOPHENOLATE MOFETIL
  7. CYCLOSPORINE [Concomitant]
     Active Substance: CYCLOSPORINE
  8. DALTEPARIN [Concomitant]
     Active Substance: DALTEPARIN
  9. DIMENHYDRINATE [Concomitant]
     Active Substance: DIMENHYDRINATE
  10. FENTANYL [Concomitant]
     Active Substance: FENTANYL
  11. FUROSEMIDE [Concomitant]
     Active Substance: FUROSEMIDE
  12. HEPARIN [Concomitant]
     Active Substance: HEPARIN SODIUM
  13. HYDROXYCHLOROQUINE [Concomitant]
     Active Substance: HYDROXYCHLOROQUINE
  14. IPRATROPIUM [Concomitant]
     Active Substance: IPRATROPIUM
  15. POLYETHYLENE GLYCOL 3350 [Concomitant]
     Active Substance: POLYETHYLENE GLYCOL 3350
  16. MAGNESIUM [Concomitant]
     Active Substance: MAGNESIUM
  17. MELATONIN [Concomitant]
     Active Substance: MELATONIN
  18. METHYLPREDNISOLONE [Concomitant]
     Active Substance: METHYLPREDNISOLONE
  19. METOCLOPRAMIDE [Concomitant]
     Active Substance: METOCLOPRAMIDE
  20. MICAFUNGIN [Concomitant]
     Active Substance: MICAFUNGIN
  21. MIDAZOLAM [Concomitant]
     Active Substance: MIDAZOLAM
  22. VITAMINS [Concomitant]
     Active Substance: VITAMINS
  23. NYSTATIN [Concomitant]
     Active Substance: NYSTATIN
  24. PREDNISONE [Concomitant]
     Active Substance: PREDNISONE
  25. ALBUTEROL [Concomitant]
     Active Substance: ALBUTEROL
  26. SENNA [Concomitant]
     Active Substance: SENNA LEAF\SENNOSIDES\SENNOSIDES A AND B
  27. SEPTRA [Concomitant]
     Active Substance: SULFAMETHOXAZOLE\TRIMETHOPRIM
  28. PIPERACILLIN SODIUM\TAZOBACTAM SODIUM [Concomitant]
     Active Substance: PIPERACILLIN SODIUM\TAZOBACTAM SODIUM
  29. VALGANCICLOVIR [Concomitant]
     Active Substance: VALGANCICLOVIR
  30. VANCOMYCIN [Concomitant]
     Active Substance: VANCOMYCIN
  31. XYLOCAINE [Concomitant]
     Active Substance: LIDOCAINE HYDROCHLORIDE
  32. ZOPICLONE [Concomitant]
     Active Substance: ZOPICLONE

REACTIONS (1)
  - Transplant rejection [Unknown]

NARRATIVE: CASE EVENT DATE: 20180528
